FAERS Safety Report 6156764-2 (Version None)
Quarter: 2009Q2

REPORT INFORMATION
  Report Type: 
  Country: None (occurrence: None)
  Receive Date: 20090416
  Receipt Date: 20090407
  Transmission Date: 20091009
  Serious: Yes (Hospitalization)
  Sender: FDA-Public Use
  Company Number: PHEH2009US03482

PATIENT
  Sex: Female

DRUGS (1)
  1. CLOZARIL [Suspect]
     Dosage: UNK

REACTIONS (9)
  - ABDOMINAL PAIN UPPER [None]
  - CYSTITIS [None]
  - DIZZINESS EXERTIONAL [None]
  - HOSPITALISATION [None]
  - MALAISE [None]
  - NEGATIVE THOUGHTS [None]
  - PAIN [None]
  - PYREXIA [None]
  - WHITE BLOOD CELL COUNT [None]
